FAERS Safety Report 15730744 (Version 6)
Quarter: 2020Q4

REPORT INFORMATION
  Report Type: Spontaneous
  Country: US (occurrence: US)
  Receive Date: 20181217
  Receipt Date: 20201002
  Transmission Date: 20210113
  Serious: Yes (Other)
  Sender: FDA-Public Use
  Company Number: US-SA-2018SA340687

PATIENT

DRUGS (23)
  1. NEULASTA [Concomitant]
     Active Substance: PEGFILGRASTIM
     Dosage: UNK
     Route: 065
  2. ZANTAC [Concomitant]
     Active Substance: RANITIDINE HYDROCHLORIDE
     Dosage: UNK
     Route: 065
  3. LOPERAMIDE [Concomitant]
     Active Substance: LOPERAMIDE
     Dosage: UNK
     Route: 065
     Dates: start: 2005
  4. TAXOTERE [Suspect]
     Active Substance: DOCETAXEL
     Indication: UTERINE CANCER
     Dosage: 177MG OR 100MG , QW, Q3W
     Dates: start: 20070412, end: 20070412
  5. TAXOTERE [Suspect]
     Active Substance: DOCETAXEL
     Dosage: 177MG OR 100MG , QW, Q3W
     Dates: start: 20111220, end: 20111220
  6. GEMZAR [Concomitant]
     Active Substance: GEMCITABINE HYDROCHLORIDE
     Dosage: UNK
     Route: 065
     Dates: start: 20111220, end: 20111220
  7. ZOFRAN [Concomitant]
     Active Substance: ONDANSETRON HYDROCHLORIDE
     Dosage: UNK
     Route: 065
  8. TYLENOL [Concomitant]
     Active Substance: ACETAMINOPHEN
     Dosage: UNK
     Route: 065
  9. ROPINIROLE. [Concomitant]
     Active Substance: ROPINIROLE
     Dosage: UNK
     Route: 065
     Dates: start: 2005
  10. DECADRON [Concomitant]
     Active Substance: DEXAMETHASONE
     Dosage: UNK
     Route: 065
  11. JANUVIA [Concomitant]
     Active Substance: SITAGLIPTIN PHOSPHATE
     Dosage: UNK
     Route: 065
     Dates: start: 2005
  12. NOVOLOG [Concomitant]
     Active Substance: INSULIN ASPART
     Dosage: UNK
     Route: 065
     Dates: start: 2005
  13. LEVEMIR [Concomitant]
     Active Substance: INSULIN DETEMIR
     Dosage: UNK
     Route: 065
     Dates: start: 2005
  14. GEMZAR [Concomitant]
     Active Substance: GEMCITABINE HYDROCHLORIDE
     Indication: UTERINE CANCER
     Dosage: UNK
     Route: 065
     Dates: start: 20070412, end: 20070412
  15. METFORMIN [Concomitant]
     Active Substance: METFORMIN HYDROCHLORIDE
     Dosage: UNK
     Route: 065
     Dates: start: 2005
  16. SIMVASTATIN. [Concomitant]
     Active Substance: SIMVASTATIN
     Dosage: UNK
     Route: 065
     Dates: start: 2005
  17. PIROXICAM. [Concomitant]
     Active Substance: PIROXICAM
     Dosage: UNK
     Route: 065
     Dates: start: 2005
  18. ALOXI [Concomitant]
     Active Substance: PALONOSETRON HYDROCHLORIDE
     Dosage: UNK
     Route: 065
  19. LEVOTHYROXINE. [Concomitant]
     Active Substance: LEVOTHYROXINE
     Dosage: UNK
     Route: 065
     Dates: start: 2008
  20. BENADRYL [Concomitant]
     Active Substance: DIPHENHYDRAMINE HYDROCHLORIDE
     Dosage: UNK
     Route: 065
  21. GABAPENTIN. [Concomitant]
     Active Substance: GABAPENTIN
     Dosage: UNK
     Route: 065
     Dates: start: 2005
  22. MIRTAZAPINE. [Concomitant]
     Active Substance: MIRTAZAPINE
     Dosage: UNK
     Route: 065
     Dates: start: 2005
  23. PIOGLITAZONE. [Concomitant]
     Active Substance: PIOGLITAZONE
     Dosage: UNK
     Route: 065
     Dates: start: 2005

REACTIONS (2)
  - Alopecia [Recovering/Resolving]
  - Psychological trauma [Unknown]

NARRATIVE: CASE EVENT DATE: 20071005
